FAERS Safety Report 10101213 (Version 4)
Quarter: 2014Q2

REPORT INFORMATION
  Report Type: Spontaneous
  Country: NZ (occurrence: None)
  Receive Date: 20140422
  Receipt Date: 20140516
  Transmission Date: 20141212
  Serious: Yes (Death, Life-Threatening, Hospitalization)
  Sender: FDA-Public Use
  Company Number: KAD201404-000406

PATIENT
  Age: 47 Year
  Sex: Male
  Weight: 68.1 kg

DRUGS (15)
  1. RIBAVIRIN [Suspect]
     Route: 048
     Dates: start: 20140210, end: 20140217
  2. SOFOSBUVIR/LEDIPASVIR [Suspect]
     Route: 048
     Dates: start: 20140210, end: 20140314
  3. LACTULOSE (LACTULOSE) [Concomitant]
  4. TRAMADOL (TRAMADOL) [Concomitant]
  5. PARACETAMOL [Concomitant]
  6. CEFTRIAXONE (CEFTRIAXONE) [Concomitant]
  7. FLEET ENEMA [Concomitant]
  8. FORTISIP [Concomitant]
  9. COQ10 OMEGA 3 [Concomitant]
  10. BONE HEALTH (BONE HEALTH) [Concomitant]
  11. CAA MULTIVITAMIN (CAA MULTIVITAMIN) [Concomitant]
  12. COLLOIDAL SILVER (COLLOIDAL SILVER) [Concomitant]
  13. RANITIDINE [Concomitant]
  14. TERLIPRESSIN (TERLIPRESSIN) [Concomitant]
  15. ALBUMIN (ALBUMIN) [Concomitant]

REACTIONS (13)
  - Melaena [None]
  - Encephalopathy [None]
  - Hepatorenal syndrome [None]
  - Erosive oesophagitis [None]
  - Gastrointestinal haemorrhage [None]
  - Hepatic failure [None]
  - Hypovolaemia [None]
  - Malnutrition [None]
  - Haematemesis [None]
  - Malnutrition [None]
  - Haemoglobin decreased [None]
  - Renal impairment [None]
  - Pain [None]
